FAERS Safety Report 7631661-1 (Version None)
Quarter: 2011Q3

REPORT INFORMATION
  Report Type: 
  Country: None (occurrence: None)
  Receive Date: 20110725
  Receipt Date: 20110210
  Transmission Date: 20111222
  Serious: No
  Sender: FDA-Public Use
  Company Number: US-BRISTOL-MYERS SQUIBB COMPANY-15542517

PATIENT
  Sex: Male

DRUGS (2)
  1. ASPIRIN [Concomitant]
     Dosage: DISCONTINUED FOR SIX WEEKS
  2. COUMADIN [Suspect]
     Dosage: COUMADIN WAS TAKEN FOR FIVE WEEKS

REACTIONS (1)
  - RASH [None]
